FAERS Safety Report 23863551 (Version 1)
Quarter: 2024Q2

REPORT INFORMATION
  Report Type: Spontaneous
  Country: US (occurrence: None)
  Receive Date: 20240515
  Receipt Date: 20240515
  Transmission Date: 20240716
  Serious: Yes (Disabling)
  Sender: FDA-Public Use
  Company Number: None

PATIENT
  Age: 89 Year
  Sex: Female
  Weight: 75.3 kg

DRUGS (11)
  1. VENTOLIN [Suspect]
     Active Substance: ALBUTEROL SULFATE
     Indication: Bronchitis
     Dosage: FREQUENCY : AS DIRECTED;?
     Route: 055
     Dates: end: 20240515
  2. VENTOLIN [Suspect]
     Active Substance: ALBUTEROL SULFATE
     Indication: Pneumonia
  3. LOSARTAN [Concomitant]
     Active Substance: LOSARTAN
  4. preservision ardiz + multivitamins [Concomitant]
  5. FISH OIL [Concomitant]
  6. PROBIOTICS NOS [Concomitant]
     Active Substance: PROBIOTICS NOS
  7. jurenon [Concomitant]
  8. COENZYME Q10 [Concomitant]
     Active Substance: DIETARY SUPPLEMENT\UBIDECARENONE
  9. VITAMIN D3 [Concomitant]
     Active Substance: CHOLECALCIFEROL
  10. vitamin c w rose hips [Concomitant]
  11. MAGNESIUM [Concomitant]

REACTIONS (8)
  - Throat tightness [None]
  - Dysphagia [None]
  - Sleep disorder [None]
  - Wheezing [None]
  - Dyspnoea [None]
  - Skin disorder [None]
  - Skin exfoliation [None]
  - Palpitations [None]

NARRATIVE: CASE EVENT DATE: 20240404
